FAERS Safety Report 5197368-8 (Version None)
Quarter: 2006Q4

REPORT INFORMATION
  Report Type: 
  Country: None (occurrence: None)
  Receive Date: 20060929
  Receipt Date: 20051205
  Transmission Date: 20070319
  Serious: Yes (Death)
  Sender: FDA-Public Use
  Company Number: FLX20050015

PATIENT
  Age: 17 Year
  Sex: Male
  Weight: 63.05 kg

DRUGS (2)
  1. FLUOXETINE [Suspect]
     Indication: DEPRESSION
     Dosage: 20 MG DAILY  PO
     Route: 048
     Dates: start: 20030208, end: 20030227
  2. TYLENOL PM  UNKNOWN [Suspect]
     Indication: SLEEP DISORDER
     Dosage: QHS   PO
     Route: 048
     Dates: start: 20030214, end: 20030227

REACTIONS (2)
  - COMPLETED SUICIDE [None]
  - DEPRESSION [None]
